FAERS Safety Report 4481003-8 (Version None)
Quarter: 2004Q3

REPORT INFORMATION
  Report Type: 
  Country: None (occurrence: None)
  Receive Date: 20040923
  Receipt Date: 20040610
  Transmission Date: 20050211
  Serious: No
  Sender: FDA-Public Use
  Company Number: USA040669045

PATIENT
  Age: 72 Year
  Sex: Female
  Weight: 50 kg

DRUGS (3)
  1. FORTEO [Suspect]
     Indication: OSTEOPOROSIS
     Dates: start: 20040301
  2. VIOXX [Concomitant]
  3. CALCIUM CARBONATE [Concomitant]

REACTIONS (4)
  - GASTROENTERITIS BACTERIAL [None]
  - ULCER [None]
  - VOMITING [None]
  - WEIGHT DECREASED [None]
